FAERS Safety Report 14998234 (Version 1)
Quarter: 2018Q2

REPORT INFORMATION
  Report Type: Spontaneous
  Country: US (occurrence: US)
  Receive Date: 20180611
  Receipt Date: 20180611
  Transmission Date: 20180711
  Serious: No
  Sender: FDA-Public Use
  Company Number: US-009507513-1805USA007374

PATIENT
  Age: 73 Year
  Sex: Male

DRUGS (6)
  1. THERAPEUTIC RADIOPHARMACEUTICAL (UNSPECIFIED) [Concomitant]
     Active Substance: UNSPECIFIED INGREDIENT
  2. CARBOPLATIN. [Concomitant]
     Active Substance: CARBOPLATIN
     Dosage: AUC 1.5
  3. EMEND [Suspect]
     Active Substance: APREPITANT
     Indication: PRURITUS
     Dosage: 125 MG, ON DAY 1
     Route: 048
  4. EMEND [Suspect]
     Active Substance: APREPITANT
     Dosage: 1.80 MG, ON DAY 2
     Route: 048
  5. PACLITAXEL. [Concomitant]
     Active Substance: PACLITAXEL
     Dosage: 30 MG/M2, UNK
  6. EMEND [Suspect]
     Active Substance: APREPITANT
     Dosage: 80 MG, ON DAY 3
     Route: 048

REACTIONS (1)
  - Therapeutic response unexpected [Unknown]
